FAERS Safety Report 8123287-0 (Version None)
Quarter: 2012Q1

REPORT INFORMATION
  Report Type: 
  Country: None (occurrence: None)
  Receive Date: 20120208
  Receipt Date: 20120126
  Transmission Date: 20120608
  Serious: Yes (Other)
  Sender: FDA-Public Use
  Company Number: FR-MYLANLABS-2012S1002330

PATIENT
  Age: 14 Year

DRUGS (3)
  1. LEVETIRACETAM [Suspect]
     Indication: PETIT MAL EPILEPSY
     Dosage: 2000MG (30 MG/KG/DAY)
     Route: 065
  2. VALPROATE SODIUM [Concomitant]
     Dosage: 20 MG/KG/DAY
  3. ETHOSUXIMIDE [Concomitant]
     Dosage: 15 MG/KG/DAY
     Route: 065

REACTIONS (2)
  - PETIT MAL EPILEPSY [None]
  - CONDITION AGGRAVATED [None]
